FAERS Safety Report 9947235 (Version 1)
Quarter: 2014Q1

REPORT INFORMATION
  Report Type: Report from Study
  Country: US (occurrence: US)
  Receive Date: 20140303
  Receipt Date: 20140303
  Transmission Date: 20141002
  Serious: No
  Sender: FDA-Public Use
  Company Number: US-ABBVIE-13P-163-1063983-00

PATIENT
  Age: 62 Year
  Sex: Female
  Weight: 101.24 kg

DRUGS (6)
  1. ZOLOFT [Concomitant]
     Indication: DEPRESSION
  2. TRAZODONE [Concomitant]
     Indication: INSOMNIA
  3. KLONOPIN [Concomitant]
     Indication: INSOMNIA
  4. PROTONIX [Concomitant]
     Indication: GASTROOESOPHAGEAL REFLUX DISEASE
  5. HUMIRA [Suspect]
     Indication: RHEUMATOID ARTHRITIS
     Dates: start: 20130223, end: 20130310
  6. METFORMIN [Concomitant]
     Indication: INSULIN RESISTANT DIABETES

REACTIONS (2)
  - Sinusitis [Recovered/Resolved]
  - Productive cough [Recovered/Resolved]
